FAERS Safety Report 7233082-2 (Version None)
Quarter: 2011Q1

REPORT INFORMATION
  Report Type: 
  Country: None (occurrence: None)
  Receive Date: 20110106
  Receipt Date: 20101222
  Transmission Date: 20110831
  Serious: Yes (Hospitalization, Other)
  Sender: FDA-Public Use
  Company Number: 8032859

PATIENT
  Sex: Male
  Weight: 83.1 kg

DRUGS (5)
  1. CERTOLIZUMAB PEGOL [Suspect]
     Indication: CROHN'S DISEASE
     Dosage: SEE IMAGE: SUBCUTANEOUS
     Route: 058
     Dates: start: 20041124, end: 20080429
  2. CERTOLIZUMAB PEGOL [Suspect]
     Indication: SMALL INTESTINAL OBSTRUCTION
     Dosage: SEE IMAGE: SUBCUTANEOUS
     Route: 058
     Dates: start: 20041124, end: 20080429
  3. CERTOLIZUMAB PEGOL [Suspect]
     Indication: CROHN'S DISEASE
     Dosage: SEE IMAGE: SUBCUTANEOUS
     Route: 058
     Dates: start: 20040426, end: 20041011
  4. CERTOLIZUMAB PEGOL [Suspect]
     Indication: SMALL INTESTINAL OBSTRUCTION
     Dosage: SEE IMAGE: SUBCUTANEOUS
     Route: 058
     Dates: start: 20040426, end: 20041011
  5. NEXIUM [Concomitant]

REACTIONS (9)
  - ILEAL PERFORATION [None]
  - CROHN'S DISEASE [None]
  - ILEITIS [None]
  - PSEUDOMEMBRANOUS COLITIS [None]
  - CONDITION AGGRAVATED [None]
  - CLOSTRIDIAL INFECTION [None]
  - COLONIC OBSTRUCTION [None]
  - ABSCESS INTESTINAL [None]
  - RECTAL ABSCESS [None]
